FAERS Safety Report 13217515 (Version 1)
Quarter: 2017Q1

REPORT INFORMATION
  Report Type: Spontaneous
  Country: US (occurrence: US)
  Receive Date: 20170210
  Receipt Date: 20170210
  Transmission Date: 20170428
  Serious: No
  Sender: FDA-Public Use
  Company Number: US-ACORDA-ACO_121596_2016

PATIENT
  Sex: Female

DRUGS (1)
  1. AMPYRA [Suspect]
     Active Substance: DALFAMPRIDINE
     Indication: GAIT DISTURBANCE
     Dosage: UNK UNK, BID
     Route: 048
     Dates: start: 201601, end: 201602

REACTIONS (4)
  - Malaise [Recovered/Resolved]
  - Vertigo [Recovered/Resolved]
  - Motor dysfunction [Recovered/Resolved]
  - Multiple sclerosis relapse [Recovered/Resolved]
